FAERS Safety Report 4763791-6 (Version None)
Quarter: 2005Q3

REPORT INFORMATION
  Report Type: 
  Country: None (occurrence: None)
  Receive Date: 20050901
  Receipt Date: 20050525
  Transmission Date: 20060218
  Serious: Yes (Hospitalization)
  Sender: FDA-Public Use
  Company Number: 05P-163-0302029-00

PATIENT
  Age: 48 Year
  Sex: Female
  Weight: 102 kg

DRUGS (6)
  1. DEPAKOTE ER [Suspect]
     Indication: BIPOLAR DISORDER
     Dosage: 500 MG, FOUR AT BEDTIME PER ORAL;  200 MG, 1 IN 1 D, PER ORAL
     Route: 048
     Dates: start: 20030101, end: 20050401
  2. DEPAKOTE ER [Suspect]
     Indication: BIPOLAR DISORDER
     Dosage: 500 MG, FOUR AT BEDTIME PER ORAL;  200 MG, 1 IN 1 D, PER ORAL
     Route: 048
     Dates: start: 20050501
  3. WELLBUTRIN XL [Concomitant]
  4. TRIAZOLAM [Concomitant]
  5. UNKNOWN ARTHRITIS DRUG [Concomitant]
  6. ESTROGENS CONJUGATED [Concomitant]

REACTIONS (1)
  - PANCREATITIS [None]
